FAERS Safety Report 5723179-8 (Version None)
Quarter: 2008Q2

REPORT INFORMATION
  Report Type: 
  Country: None (occurrence: None)
  Receive Date: 20080430
  Receipt Date: 20080421
  Transmission Date: 20081010
  Serious: Yes (Hospitalization)
  Sender: FDA-Public Use
  Company Number: FR-ELI_LILLY_AND_COMPANY-FR200803002030

PATIENT
  Sex: Female
  Weight: 59 kg

DRUGS (5)
  1. FORTEO [Suspect]
     Indication: OSTEOPOROSIS
     Dosage: 20 UG, DAILY (1/D)
     Route: 058
     Dates: start: 20061019
  2. PRAVASTATIN SODIUM [Concomitant]
     Indication: HYPERCHOLESTEROLAEMIA
     Dosage: 1 D/F, EACH EVENING
     Route: 048
  3. ASPIRIN [Concomitant]
     Indication: HYPERTENSION
     Dosage: 1 D/F, DAILY (1/D)
     Route: 048
  4. OMEPRAZOLE [Concomitant]
     Indication: HIATUS HERNIA
     Dosage: 1 D/F, EACH EVENING
     Route: 048
  5. SUCRALFATE [Concomitant]
     Indication: HIATUS HERNIA
     Dosage: 1 D/F, EACH EVENING
     Route: 048

REACTIONS (3)
  - BLOOD PRESSURE INCREASED [None]
  - CHEST PAIN [None]
  - TINNITUS [None]
